FAERS Safety Report 7013133-0 (Version None)
Quarter: 2010Q3

REPORT INFORMATION
  Report Type: 
  Country: None (occurrence: None)
  Receive Date: 20100924
  Receipt Date: 20100920
  Transmission Date: 20110219
  Serious: Yes (Hospitalization)
  Sender: FDA-Public Use
  Company Number: FR-WYE-G06694110

PATIENT
  Age: 81 Year
  Sex: Female

DRUGS (4)
  1. PIPERACILLIN AND TAZOBACTAM [Suspect]
     Indication: PNEUMONIA
     Dosage: UNKNOWN
     Route: 042
     Dates: start: 20100621, end: 20100623
  2. PROFENID [Suspect]
     Dosage: UNKNOWN
     Route: 065
     Dates: start: 20100619, end: 20100623
  3. IMIPENEM AND CILASTATIN [Concomitant]
     Indication: PNEUMONIA
     Dosage: UNKNOWN
     Route: 042
     Dates: start: 20100623, end: 20100709
  4. VANCOMYCIN [Suspect]
     Indication: PNEUMONIA
     Dosage: UNKNOWN
     Route: 065
     Dates: start: 20100623, end: 20100626

REACTIONS (3)
  - FLUID OVERLOAD [None]
  - RENAL FAILURE ACUTE [None]
  - SALT INTOXICATION [None]
